FAERS Safety Report 22228962 (Version 4)
Quarter: 2023Q2

REPORT INFORMATION
  Report Type: Spontaneous
  Country: US (occurrence: US)
  Receive Date: 20230419
  Receipt Date: 20230601
  Transmission Date: 20230721
  Serious: Yes (Other)
  Sender: FDA-Public Use
  Company Number: US-SANOFI-01578852

PATIENT
  Age: 69 Year
  Sex: Male

DRUGS (2)
  1. LANTUS SOLOSTAR [Suspect]
     Active Substance: INSULIN GLARGINE
     Indication: Type 2 diabetes mellitus
     Dosage: 9 UNITS AM 8 UNITS PM BID AND DRUG TREATMENT DURATION:2 MONTHS
     Dates: start: 2023
  2. LANTUS SOLOSTAR [Suspect]
     Active Substance: INSULIN GLARGINE
     Dosage: 8 UNITS AM + 9 UNITS PM
     Route: 065
     Dates: start: 2023

REACTIONS (2)
  - Blindness [Unknown]
  - Inappropriate schedule of product administration [Unknown]
